FAERS Safety Report 7972586-1 (Version None)
Quarter: 2011Q4

REPORT INFORMATION
  Report Type: 
  Country: None (occurrence: None)
  Receive Date: 20111213
  Receipt Date: 20111201
  Transmission Date: 20120403
  Serious: Yes (Other)
  Sender: FDA-Public Use
  Company Number: CA-JNJFOC-20111200724

PATIENT
  Sex: Female
  Weight: 96.5 kg

DRUGS (13)
  1. REMICADE [Suspect]
     Indication: PSORIATIC ARTHROPATHY
     Dosage: 7 INFUSIONS AT PRESENT
     Route: 042
     Dates: start: 20110301
  2. SYNTHROID [Concomitant]
  3. PREDNISONE [Concomitant]
  4. L-TRYPTOPHAN [Concomitant]
  5. HYDROCHLOROTHIAZIDE [Concomitant]
  6. PROGESTERONE [Concomitant]
  7. ATACAND [Concomitant]
  8. METHOTREXATE [Concomitant]
  9. MEDROXYPROGESTERONE [Concomitant]
  10. ZYTRAM [Concomitant]
  11. NEXIUM [Concomitant]
  12. DICLOFENAC [Concomitant]
  13. BENADRYL [Concomitant]

REACTIONS (2)
  - GINGIVAL GRAFT [None]
  - TOOTH ABSCESS [None]
